FAERS Safety Report 24986151 (Version 1)
Quarter: 2025Q1

REPORT INFORMATION
  Report Type: Spontaneous
  Country: US (occurrence: None)
  Receive Date: 20250218
  Receipt Date: 20250218
  Transmission Date: 20250409
  Serious: Yes (Life-Threatening, Hospitalization, Disabling)
  Sender: FDA-CTU
  Company Number: None

PATIENT
  Age: 22 Year
  Sex: Female
  Weight: 218.25 kg

DRUGS (3)
  1. REMDESIVIR [Suspect]
     Active Substance: REMDESIVIR
     Indication: COVID-19
     Dosage: FREQUENCY : DAILY;?
     Route: 042
     Dates: start: 20220218, end: 20220223
  2. PAXLOVID [Suspect]
     Active Substance: NIRMATRELVIR\RITONAVIR
  3. LOSARTAN [Concomitant]
     Active Substance: LOSARTAN

REACTIONS (6)
  - Skin hyperpigmentation [None]
  - Skin discolouration [None]
  - Muscle disorder [None]
  - Nerve injury [None]
  - Hepatomegaly [None]
  - Blood urine present [None]

NARRATIVE: CASE EVENT DATE: 20220218
